FAERS Safety Report 4316074-2 (Version None)
Quarter: 2004Q1

REPORT INFORMATION
  Report Type: 
  Country: None (occurrence: None)
  Receive Date: 20040310
  Receipt Date: 20040220
  Transmission Date: 20041129
  Serious: Yes (Other)
  Sender: FDA-Public Use
  Company Number: 2004-BP-01437MX

PATIENT
  Age: 74 Year
  Sex: Female

DRUGS (5)
  1. MOBICOX 15.0 MG TABLETS (TA) (MELOXICAM) [Suspect]
     Indication: LOCALISED OSTEOARTHRITIS
     Dosage: 15 MG (15 MG, 1 TA O.D.)
     Route: 048
     Dates: start: 20040215, end: 20040216
  2. AFLAMID  (TA) (MELOXICAM) [Suspect]
     Indication: LOCALISED OSTEOARTHRITIS
     Dosage: 15 MG (15 MG)
     Route: 048
     Dates: start: 20040214, end: 20040214
  3. NORVAS (AMLODIPINE BESILATE) (TA) [Concomitant]
  4. ARTRENAC (DICLOFENAC SODIUM) (KA) [Concomitant]
  5. PROFENIT [Concomitant]

REACTIONS (5)
  - ANXIETY [None]
  - CONJUNCTIVAL HAEMORRHAGE [None]
  - DYSPNOEA [None]
  - RASH [None]
  - TREATMENT NONCOMPLIANCE [None]
